FAERS Safety Report 4533915-4 (Version None)
Quarter: 2004Q4

REPORT INFORMATION
  Report Type: 
  Country: None (occurrence: None)
  Receive Date: 20041210
  Receipt Date: 20040521
  Transmission Date: 20050328
  Serious: Yes (Other)
  Sender: FDA-Public Use
  Company Number: A03200401647

PATIENT
  Age: 44 Year
  Sex: Female
  Weight: 75.2971 kg

DRUGS (13)
  1. ELOXATIN [Suspect]
     Indication: COLON CANCER STAGE III
     Dosage: 150 MG Q2W - INTRAVENOUS NOS
     Route: 042
     Dates: start: 20040518, end: 20040518
  2. FLUOROURACIL [Concomitant]
  3. LEUCOVORIN [Concomitant]
  4. METOCLOPRAMIDE [Concomitant]
  5. LORAZEPAM [Concomitant]
  6. DEXAMETHASONE [Concomitant]
  7. CALCIUM [Concomitant]
  8. MAGNESIUM [Concomitant]
  9. WARFARIN SODIUM [Concomitant]
  10. MULTIVITAMIN [Concomitant]
  11. ESCITALOPRAM OXALATE [Concomitant]
  12. PALONOSETRON HYDROCHLORIDE [Concomitant]
  13. DIPHENHYDRAMINE [Concomitant]

REACTIONS (3)
  - FLUSHING [None]
  - SWELLING FACE [None]
  - THROAT TIGHTNESS [None]
